FAERS Safety Report 4930889-9 (Version None)
Quarter: 2006Q1

REPORT INFORMATION
  Report Type: 
  Country: None (occurrence: None)
  Receive Date: 20060227
  Receipt Date: 20060214
  Transmission Date: 20060701
  Serious: Yes (Hospitalization)
  Sender: FDA-Public Use
  Company Number: CIP06000373

PATIENT
  Age: 84 Year
  Sex: Male

DRUGS (4)
  1. DANTRIUM [Suspect]
     Dosage: 25 MG AS NEEDED, ORAL
     Route: 048
  2. HARNAL (TAMSULOSIN HYDROCHLORIDE) [Suspect]
     Dosage: 0.2 MG DAILY, ORAL
     Route: 048
     Dates: start: 20050711, end: 20051220
  3. ACECOL (TEMOCAPRIL HYDROCHLORIDE) [Concomitant]
  4. SG TABLET (SULFAGUANIDINE) [Concomitant]

REACTIONS (2)
  - LIVER DISORDER [None]
  - RENAL DISORDER [None]
